FAERS Safety Report 12280761 (Version 1)
Quarter: 2016Q2

REPORT INFORMATION
  Report Type: Spontaneous
  Country: FR (occurrence: FR)
  Receive Date: 20160419
  Receipt Date: 20160419
  Transmission Date: 20160815
  Serious: Yes (Disabling)
  Sender: FDA-Public Use
  Company Number: FR-ELI_LILLY_AND_COMPANY-FR201604001720

PATIENT
  Age: 0 Year

DRUGS (4)
  1. ZYPREXA [Suspect]
     Active Substance: OLANZAPINE
     Indication: BIPOLAR DISORDER
     Dosage: 20 MG, QD
     Route: 064
  2. SERESTA [Suspect]
     Active Substance: OXAZEPAM
     Indication: BIPOLAR DISORDER
     Dosage: 50 MG, QD
     Route: 064
  3. ZYPREXA [Suspect]
     Active Substance: OLANZAPINE
     Indication: BIPOLAR DISORDER
     Dosage: 20 MG, QD
     Route: 064
  4. SERESTA [Suspect]
     Active Substance: OXAZEPAM
     Indication: BIPOLAR DISORDER
     Dosage: 50 MG, QD
     Route: 064

REACTIONS (5)
  - Psychomotor retardation [Not Recovered/Not Resolved]
  - Nystagmus [Not Recovered/Not Resolved]
  - Astigmatism [Not Recovered/Not Resolved]
  - Foetal exposure during pregnancy [Unknown]
  - Autism [Not Recovered/Not Resolved]

NARRATIVE: CASE EVENT DATE: 20130823
